FAERS Safety Report 22096762 (Version 1)
Quarter: 2023Q1

REPORT INFORMATION
  Report Type: Spontaneous
  Country: US (occurrence: US)
  Receive Date: 20230315
  Receipt Date: 20230315
  Transmission Date: 20230418
  Serious: Yes (Other)
  Sender: FDA-Public Use
  Company Number: US-AUROBINDO-AUR-APL-2023-006389

PATIENT
  Age: 19 Year
  Sex: Male

DRUGS (3)
  1. RISPERIDONE [Suspect]
     Active Substance: RISPERIDONE
     Indication: Catatonia
     Dosage: 0.5 MILLIGRAM, AT BED TIME
     Route: 048
  2. LORAZEPAM [Suspect]
     Active Substance: LORAZEPAM
     Indication: Catatonia
     Dosage: 4 MILLIGRAM, FOUR TIMES/DAY,(4MG EVERY 6 HOURS)
     Route: 065
  3. ZIPRASIDONE HYDROCHLORIDE [Suspect]
     Active Substance: ZIPRASIDONE HYDROCHLORIDE
     Indication: Catatonia
     Dosage: 10 MILLIGRAM, AT BED TIME,(10MG NIGHTLY FOR ONE WEEK;)
     Route: 030

REACTIONS (1)
  - Drug ineffective [Unknown]
